FAERS Safety Report 8262607 (Version 2)
Quarter: 2013Q4

REPORT INFORMATION
  Report Type: Spontaneous
  Country: US (occurrence: US)
  Receive Date: 20111124
  Receipt Date: 20131231
  Transmission Date: 20140711
  Serious: Yes (Death, Other)
  Sender: FDA-Public Use
  Company Number: US-RANBAXY-2011US-50612

PATIENT
  Age: 58 Year
  Sex: Female

DRUGS (4)
  1. ZOLPIDEM [Suspect]
     Indication: PRODUCT USED FOR UNKNOWN INDICATION
     Dosage: UNK
     Route: 065
  2. CARBAMAZEPINE [Concomitant]
     Indication: PRODUCT USED FOR UNKNOWN INDICATION
     Dosage: UNK
     Route: 065
  3. NAPROXEN [Concomitant]
     Indication: PRODUCT USED FOR UNKNOWN INDICATION
     Dosage: UNK
     Route: 065
  4. RISPERIDONE [Concomitant]
     Indication: PRODUCT USED FOR UNKNOWN INDICATION
     Dosage: UNK
     Route: 065

REACTIONS (7)
  - Completed suicide [Fatal]
  - Overdose [Fatal]
  - Cardiomegaly [Unknown]
  - Pulmonary oedema [Unknown]
  - Hepatomegaly [Unknown]
  - Arteriosclerosis [Unknown]
  - Pyelonephritis chronic [Unknown]
